FAERS Safety Report 13892100 (Version 2)
Quarter: 2017Q4

REPORT INFORMATION
  Report Type: Spontaneous
  Country: US (occurrence: US)
  Receive Date: 20170822
  Receipt Date: 20171031
  Transmission Date: 20180320
  Serious: Yes (Life-Threatening, Hospitalization)
  Sender: FDA-Public Use
  Company Number: US-JNJFOC-20170818054

PATIENT
  Age: 50 Year
  Sex: Female
  Weight: 81.33 kg

DRUGS (3)
  1. INVOKANA [Suspect]
     Active Substance: CANAGLIFLOZIN
     Indication: TYPE 2 DIABETES MELLITUS
     Route: 048
     Dates: start: 20130524, end: 20140101
  2. INVOKANA [Suspect]
     Active Substance: CANAGLIFLOZIN
     Indication: TYPE 2 DIABETES MELLITUS
     Route: 048
     Dates: start: 20141110, end: 20150814
  3. INVOKANA [Suspect]
     Active Substance: CANAGLIFLOZIN
     Indication: TYPE 2 DIABETES MELLITUS
     Route: 048
     Dates: start: 20140318

REACTIONS (3)
  - Acute respiratory failure [Recovering/Resolving]
  - Diabetic ketoacidosis [Recovering/Resolving]
  - Metabolic encephalopathy [Recovering/Resolving]

NARRATIVE: CASE EVENT DATE: 201508
